FAERS Safety Report 8262365-2 (Version None)
Quarter: 2012Q2

REPORT INFORMATION
  Report Type: 
  Country: None (occurrence: None)
  Receive Date: 20120405
  Receipt Date: 20120328
  Transmission Date: 20120825
  Serious: Yes (Hospitalization, Other)
  Sender: FDA-Public Use
  Company Number: US-ROCHE-783986

PATIENT
  Sex: Female
  Weight: 52.664 kg

DRUGS (4)
  1. ACCUTANE [Suspect]
     Indication: PRODUCT USED FOR UNKNOWN INDICATION
     Route: 065
     Dates: start: 19980901, end: 19990101
  2. XANAX [Concomitant]
     Indication: ANXIETY
  3. ORTHO TRI-CYCLEN [Concomitant]
  4. DESOWEN [Concomitant]

REACTIONS (12)
  - PRURITUS [None]
  - DEPRESSION [None]
  - PYODERMA GANGRENOSUM [None]
  - NASAL DRYNESS [None]
  - DRY SKIN [None]
  - MUSCLE STRAIN [None]
  - ANAL FISTULA [None]
  - STRESS [None]
  - INFLAMMATORY BOWEL DISEASE [None]
  - COLITIS ULCERATIVE [None]
  - IRRITABLE BOWEL SYNDROME [None]
  - BLEPHARITIS [None]
